FAERS Safety Report 4531003-4 (Version None)
Quarter: 2004Q4

REPORT INFORMATION
  Report Type: 
  Country: None (occurrence: None)
  Receive Date: 20041217
  Receipt Date: 20040616
  Transmission Date: 20050328
  Serious: Yes (Death, Other)
  Sender: FDA-Public Use
  Company Number: JP-MERCK-0406USA01772

PATIENT
  Age: 50 Year
  Sex: Male

DRUGS (4)
  1. COSMEGEN [Suspect]
     Indication: EWING'S SARCOMA
     Route: 051
     Dates: start: 20010917, end: 20010918
  2. ONCOVIN [Suspect]
     Indication: EWING'S SARCOMA
     Route: 042
     Dates: start: 20010917, end: 20010924
  3. IFOMIDE [Suspect]
     Indication: EWING'S SARCOMA
     Route: 041
     Dates: start: 20010917, end: 20010921
  4. ADRIACIN [Suspect]
     Indication: EWING'S SARCOMA
     Route: 042
     Dates: start: 20010917, end: 20010918

REACTIONS (4)
  - EWING'S SARCOMA METASTATIC [None]
  - LEUKOPENIA [None]
  - NEUTROPHIL COUNT DECREASED [None]
  - THROMBOCYTOPENIA [None]
